FAERS Safety Report 13802695 (Version 1)
Quarter: 2017Q3

REPORT INFORMATION
  Report Type: Spontaneous
  Country: US (occurrence: US)
  Receive Date: 20170728
  Receipt Date: 20170728
  Transmission Date: 20171127
  Serious: No
  Sender: FDA-Public Use
  Company Number: US-PERRIGO-16US019500

PATIENT
  Age: 70 Year
  Sex: Male
  Weight: 49.89 kg

DRUGS (1)
  1. MINOXIDIL. [Suspect]
     Active Substance: MINOXIDIL
     Indication: ALOPECIA
     Dosage: 1 ML, NIGHTLY
     Route: 061
     Dates: start: 201605

REACTIONS (3)
  - Abdominal pain upper [Recovering/Resolving]
  - Underdose [Not Recovered/Not Resolved]
  - Peripheral swelling [Not Recovered/Not Resolved]

NARRATIVE: CASE EVENT DATE: 201605
